FAERS Safety Report 6148323-2 (Version None)
Quarter: 2009Q2

REPORT INFORMATION
  Report Type: 
  Country: None (occurrence: None)
  Receive Date: 20090408
  Receipt Date: 20090402
  Transmission Date: 20091009
  Serious: Yes (Other)
  Sender: FDA-Public Use
  Company Number: US-MERCK-0904USA00399

PATIENT
  Age: 60 Year
  Sex: Female

DRUGS (7)
  1. COSOPT [Suspect]
     Indication: GLAUCOMA
     Route: 047
     Dates: start: 19800101
  2. LUMIGAN [Concomitant]
     Route: 065
  3. ALPHAGAN [Concomitant]
     Route: 065
  4. METOPROLOL [Concomitant]
     Route: 065
  5. GLYBURIDE [Concomitant]
     Route: 065
  6. SINGULAIR [Concomitant]
     Route: 048
  7. GLUCOPHAGE [Suspect]
     Route: 065
     Dates: start: 20070101

REACTIONS (2)
  - BLINDNESS [None]
  - DYSPNOEA [None]
